FAERS Safety Report 8068939-6 (Version None)
Quarter: 2012Q1

REPORT INFORMATION
  Report Type: 
  Country: None (occurrence: None)
  Receive Date: 20120118
  Receipt Date: 20120105
  Transmission Date: 20120608
  Serious: Yes (Life-Threatening, Hospitalization, Other)
  Sender: FDA-Public Use
  Company Number: 2012P1000536

PATIENT
  Age: 45 Year
  Sex: Female

DRUGS (14)
  1. OMEPRAZOLE [Suspect]
     Dates: start: 20060531, end: 20060602
  2. ANTIHISTAMINE [Concomitant]
  3. ALBENZA [Suspect]
     Indication: ABDOMINAL PAIN
     Dosage: PO ; QD;PO
     Route: 048
     Dates: start: 20060621, end: 20060621
  4. ALBENZA [Suspect]
     Indication: STRONGYLOIDIASIS
     Dosage: PO ; QD;PO
     Route: 048
     Dates: start: 20060621, end: 20060621
  5. ALBENZA [Suspect]
     Indication: ABDOMINAL PAIN
     Dosage: PO ; QD;PO
     Route: 048
     Dates: start: 20060801, end: 20060801
  6. ALBENZA [Suspect]
     Indication: STRONGYLOIDIASIS
     Dosage: PO ; QD;PO
     Route: 048
     Dates: start: 20060801, end: 20060801
  7. ALBENZA [Suspect]
     Indication: ABDOMINAL PAIN
     Dosage: PO ; QD;PO
     Route: 048
     Dates: start: 20060818, end: 20060820
  8. ALBENZA [Suspect]
     Indication: STRONGYLOIDIASIS
     Dosage: PO ; QD;PO
     Route: 048
     Dates: start: 20060818, end: 20060820
  9. MELOXICAM [Suspect]
     Indication: PAIN
     Dosage: 15 MG;PO ; PO
     Route: 048
     Dates: start: 20060701
  10. MELOXICAM [Suspect]
     Indication: PAIN
     Dosage: 15 MG;PO ; PO
     Route: 048
     Dates: start: 20060531, end: 20060602
  11. ACETAMINOPHEN [Suspect]
     Indication: BACK PAIN
     Dosage: 1000-1500 MG QD;PO ; 1000 MG;QD;PO ; 500 MG;TID;PO
     Route: 048
     Dates: start: 20060801
  12. ACETAMINOPHEN [Suspect]
     Indication: BACK PAIN
     Dosage: 1000-1500 MG QD;PO ; 1000 MG;QD;PO ; 500 MG;TID;PO
     Route: 048
     Dates: start: 20060531, end: 20060602
  13. ACETAMINOPHEN [Suspect]
     Indication: BACK PAIN
     Dosage: 1000-1500 MG QD;PO ; 1000 MG;QD;PO ; 500 MG;TID;PO
     Route: 048
     Dates: start: 20060701
  14. ACETAMINOPHEN [Suspect]
     Indication: BACK PAIN
     Dosage: 1000-1500 MG QD;PO ; 1000 MG;QD;PO ; 500 MG;TID;PO
     Route: 048
     Dates: start: 20060801

REACTIONS (30)
  - TRANSFERRIN SATURATION INCREASED [None]
  - HEPATIC FAILURE [None]
  - BLOOD POTASSIUM DECREASED [None]
  - LIVER TRANSPLANT [None]
  - HEPATIC CALCIFICATION [None]
  - PROTHROMBIN TIME PROLONGED [None]
  - SERUM FERRITIN INCREASED [None]
  - ANTINEUTROPHIL CYTOPLASMIC ANTIBODY POSITIVE [None]
  - COAGULATION FACTOR V LEVEL DECREASED [None]
  - BLOOD PH DECREASED [None]
  - BLOOD CHLORIDE INCREASED [None]
  - PROTEIN TOTAL DECREASED [None]
  - KLEBSIELLA SEPSIS [None]
  - ANASTOMOTIC STENOSIS [None]
  - CHOLESTASIS [None]
  - VOMITING [None]
  - PLATELET COUNT DECREASED [None]
  - PCO2 DECREASED [None]
  - PO2 INCREASED [None]
  - STRONGYLOIDIASIS [None]
  - ABDOMINAL PAIN [None]
  - BLOOD SODIUM INCREASED [None]
  - AUTOIMMUNE HEPATITIS [None]
  - HAEMOGLOBIN DECREASED [None]
  - BACK PAIN [None]
  - HEPATITIS FULMINANT [None]
  - SCHISTOSOMA TEST POSITIVE [None]
  - HEPATITIS A ANTIBODY POSITIVE [None]
  - BLOOD LACTIC ACID INCREASED [None]
  - DRUG HYPERSENSITIVITY [None]
